FAERS Safety Report 7064800-4 (Version None)
Quarter: 2010Q4

REPORT INFORMATION
  Report Type: 
  Country: None (occurrence: None)
  Receive Date: 20101027
  Receipt Date: 20101018
  Transmission Date: 20110411
  Serious: Yes (Hospitalization)
  Sender: FDA-Public Use
  Company Number: US-ASTRAZENECA-2010SE49113

PATIENT
  Age: 76 Year
  Sex: Female
  Weight: 63 kg

DRUGS (7)
  1. ARIMIDEX [Suspect]
     Indication: BREAST CANCER
     Route: 048
     Dates: start: 20051213, end: 20100804
  2. LISINOPRIL [Suspect]
  3. NORVASC [Suspect]
     Route: 048
  4. SPIRIVA [Suspect]
     Dosage: ONE PUFF DAILY
     Route: 055
  5. HYDROCHLOROTHIZIADE [Suspect]
  6. EFFEXOR [Suspect]
  7. FORTEO [Suspect]
     Route: 058

REACTIONS (5)
  - BUNDLE BRANCH BLOCK LEFT [None]
  - CARDIAC FAILURE CONGESTIVE [None]
  - MYOCARDIAL ISCHAEMIA [None]
  - RESTRICTIVE CARDIOMYOPATHY [None]
  - TROPONIN INCREASED [None]
